FAERS Safety Report 9129917 (Version 1)
Quarter: 2013Q1

REPORT INFORMATION
  Report Type: Report from Study
  Country: US (occurrence: US)
  Receive Date: 20130228
  Receipt Date: 20130228
  Transmission Date: 20140127
  Serious: Yes (Hospitalization)
  Sender: FDA-Public Use
  Company Number: US-TEVA-388871USA

PATIENT
  Age: 51 Year
  Sex: Male
  Weight: 80.73 kg

DRUGS (10)
  1. TREANDA [Suspect]
     Indication: CHRONIC LYMPHOCYTIC LEUKAEMIA
     Route: 042
     Dates: start: 20121127, end: 20121228
  2. RITUXIMAB [Suspect]
     Indication: CHRONIC LYMPHOCYTIC LEUKAEMIA
     Route: 042
     Dates: start: 20121127, end: 20121227
  3. GS-1101 [Suspect]
     Indication: CHRONIC LYMPHOCYTIC LEUKAEMIA
     Dosage: 300 MILLIGRAM DAILY;
     Route: 048
     Dates: start: 20121127, end: 20130105
  4. ZOFRAN [Concomitant]
     Dates: start: 20130106
  5. ATIVAN [Concomitant]
  6. COMPAZINE [Concomitant]
  7. MULTIVITAMIN [Concomitant]
  8. DAPSONE [Concomitant]
  9. VICODIN [Concomitant]
  10. ALLOPURINOL [Concomitant]

REACTIONS (4)
  - Pericardial effusion [Recovered/Resolved]
  - Pleural effusion [Recovered/Resolved]
  - Pyrexia [Recovered/Resolved]
  - Abdominal pain [Recovered/Resolved]
